FAERS Safety Report 4713059-9 (Version None)
Quarter: 2005Q3

REPORT INFORMATION
  Report Type: 
  Country: None (occurrence: None)
  Receive Date: 20050711
  Receipt Date: 20050616
  Transmission Date: 20060218
  Serious: No
  Sender: FDA-Public Use
  Company Number: 11640

PATIENT
  Age: 55 Year
  Sex: Male

DRUGS (2)
  1. AMIODARONE [Suspect]
     Indication: ATRIAL FIBRILLATION
     Dosage: SEE IMAGE
     Dates: end: 19950501
  2. DIGOXIN [Concomitant]

REACTIONS (8)
  - ABNORMAL BEHAVIOUR [None]
  - AMMONIA INCREASED [None]
  - ASCITES [None]
  - CHOLESTASIS [None]
  - ENCEPHALOPATHY [None]
  - HEPATITIS ACUTE [None]
  - HEPATITIS C ANTIBODY POSITIVE [None]
  - REACTION TO PRESERVATIVES [None]
